FAERS Safety Report 11396379 (Version 2)
Quarter: 2015Q4

REPORT INFORMATION
  Report Type: Spontaneous
  Country: US (occurrence: US)
  Receive Date: 20150819
  Receipt Date: 20151111
  Transmission Date: 20160304
  Serious: Yes (Hospitalization)
  Sender: FDA-Public Use
  Company Number: US-JNJFOC-20150804930

PATIENT
  Age: 70 Year
  Sex: Female

DRUGS (11)
  1. XARELTO [Suspect]
     Active Substance: RIVAROXABAN
     Indication: ATRIAL FIBRILLATION
     Dosage: AFTER DINNER
     Route: 048
     Dates: start: 20130606, end: 20130830
  2. XARELTO [Suspect]
     Active Substance: RIVAROXABAN
     Indication: CEREBROVASCULAR ACCIDENT PROPHYLAXIS
     Dosage: AFTER DINNER
     Route: 048
     Dates: start: 20130606, end: 20130830
  3. INDAPAMIDE. [Concomitant]
     Active Substance: INDAPAMIDE
     Route: 065
  4. L-LYSINE [Concomitant]
     Active Substance: LYSINE
     Route: 065
  5. ASPIRIN. [Suspect]
     Active Substance: ASPIRIN
     Indication: PRODUCT USED FOR UNKNOWN INDICATION
     Route: 065
  6. XARELTO [Suspect]
     Active Substance: RIVAROXABAN
     Indication: THROMBOSIS PROPHYLAXIS
     Dosage: AFTER DINNER
     Route: 048
     Dates: start: 20130606, end: 20130830
  7. CALCIUM CARBONATE. [Concomitant]
     Active Substance: CALCIUM CARBONATE
     Route: 065
  8. NEORAL [Concomitant]
     Active Substance: CYCLOSPORINE
     Route: 065
  9. MYCOPHENOLATE [Concomitant]
     Active Substance: MYCOPHENOLIC ACID
     Route: 065
  10. LOSARTAN. [Concomitant]
     Active Substance: LOSARTAN
     Route: 065
  11. PIOGLITAZONE. [Concomitant]
     Active Substance: PIOGLITAZONE
     Route: 065

REACTIONS (1)
  - Gastrointestinal haemorrhage [Recovering/Resolving]

NARRATIVE: CASE EVENT DATE: 20130830
